FAERS Safety Report 5852049-X (Version None)
Quarter: 2008Q3

REPORT INFORMATION
  Report Type: 
  Country: None (occurrence: None)
  Receive Date: 20080820
  Receipt Date: 20080820
  Transmission Date: 20090109
  Serious: No
  Sender: FDA-Public Use
  Company Number: None

PATIENT
  Sex: Male

DRUGS (1)
  1. THALOMID [Suspect]
     Dosage: 50 MG QD PO OFF MEDS ~4 DAYS (8/13/08)
     Route: 048
     Dates: start: 20080813

REACTIONS (2)
  - DERMATITIS CONTACT [None]
  - RASH [None]
